FAERS Safety Report 8967769 (Version 1)
Quarter: 2012Q4

REPORT INFORMATION
  Report Type: 
  Country: US (occurrence: US)
  Receive Date: 20121217
  Receipt Date: 20121217
  Transmission Date: 20130627
  Serious: Yes (Other)
  Sender: FDA-Public Use
  Company Number: US-ASTRAZENECA-2012SE92365

PATIENT
  Sex: Male

DRUGS (3)
  1. CRESTOR [Suspect]
     Route: 048
     Dates: start: 201003, end: 201211
  2. CRESTOR [Suspect]
     Route: 048
  3. LIPITOR [Suspect]
     Dosage: GENERIC
     Route: 065

REACTIONS (1)
  - Renal failure [Unknown]
